FAERS Safety Report 17974194 (Version 4)
Quarter: 2021Q2

REPORT INFORMATION
  Report Type: Spontaneous
  Country: US (occurrence: US)
  Receive Date: 20200702
  Receipt Date: 20210402
  Transmission Date: 20210717
  Serious: Yes (Hospitalization, Other)
  Sender: FDA-Public Use
  Company Number: US-AMNEAL PHARMACEUTICALS-2020-AMRX-01704

PATIENT
  Age: 0 Year
  Sex: Female
  Weight: 6.3 kg

DRUGS (12)
  1. VIGABATRIN. [Suspect]
     Active Substance: VIGABATRIN
     Indication: INFANTILE SPASMS
     Dosage: 125 MILLIGRAM, BID
     Route: 048
     Dates: start: 20200601, end: 20200608
  2. VIGABATRIN. [Suspect]
     Active Substance: VIGABATRIN
     Dosage: 5 MILLILITER, 2X/DAY
     Route: 048
     Dates: end: 202010
  3. VIGABATRIN. [Suspect]
     Active Substance: VIGABATRIN
     Dosage: 525 MILLIGRAM, BID
     Route: 048
     Dates: start: 2020, end: 2020
  4. VIGABATRIN. [Suspect]
     Active Substance: VIGABATRIN
     Dosage: 350 MILLIGRAM, MORNING
     Route: 048
     Dates: start: 20201125
  5. VIGABATRIN. [Suspect]
     Active Substance: VIGABATRIN
     Dosage: 1250 MILLIGRAM, 1 /DAY
     Route: 048
  6. VIGABATRIN. [Suspect]
     Active Substance: VIGABATRIN
     Dosage: 250 MILLIGRAM, BID
     Route: 048
     Dates: start: 20200609, end: 202007
  7. VIGABATRIN. [Suspect]
     Active Substance: VIGABATRIN
     Dosage: 2.5 MILLILITER, 2X/DAY
     Route: 048
  8. VIGABATRIN. [Suspect]
     Active Substance: VIGABATRIN
     Dosage: 2.5 MILLILITER, 2X/DAY
     Route: 048
     Dates: start: 20201024, end: 20201026
  9. VIGABATRIN. [Suspect]
     Active Substance: VIGABATRIN
     Dosage: 350 MILLIGRAM, BID (7 ML)
     Route: 048
     Dates: start: 202007, end: 2020
  10. VIGABATRIN. [Suspect]
     Active Substance: VIGABATRIN
     Dosage: 1000 MILLIGRAM, 2 /DAY, 2 PACKETS (AROUND 8AM OR 9AM) AND 2PACKETS AT NIGHT ( 8PM OR 9PM)
     Route: 048
  11. VIGABATRIN. [Suspect]
     Active Substance: VIGABATRIN
     Dosage: 7 MILLILITER, MORNING AND AT NIGHT
     Route: 048
  12. PREDNISONE. [Concomitant]
     Active Substance: PREDNISONE
     Indication: PRODUCT USED FOR UNKNOWN INDICATION
     Dosage: 5 MILLIGRAM, BID
     Route: 065
     Dates: start: 2020, end: 20200608

REACTIONS (5)
  - Partial seizures [Recovered/Resolved]
  - Vomiting [Recovered/Resolved]
  - Sleep disorder [Not Recovered/Not Resolved]
  - Epilepsy [Recovering/Resolving]
  - Eye movement disorder [Not Recovered/Not Resolved]

NARRATIVE: CASE EVENT DATE: 2020
